FAERS Safety Report 4401667-4 (Version None)
Quarter: 2004Q3

REPORT INFORMATION
  Report Type: 
  Country: None (occurrence: None)
  Receive Date: 20040719
  Receipt Date: 20040428
  Transmission Date: 20050211
  Serious: Yes (Life-Threatening, Hospitalization, Disabling, Other)
  Sender: FDA-Public Use
  Company Number: CA-GLAXOSMITHKLINE-A0509557A

PATIENT
  Age: 70 Year
  Sex: Male

DRUGS (2)
  1. AVANDIA [Suspect]
     Dosage: 4MG PER DAY
     Route: 048
     Dates: start: 20010319, end: 20011201
  2. METFORMIN HCL [Concomitant]
     Dosage: 250MG TWICE PER DAY
     Route: 048

REACTIONS (6)
  - BLOOD TRIGLYCERIDES INCREASED [None]
  - CEREBROVASCULAR ACCIDENT [None]
  - DYSARTHRIA [None]
  - FACIAL PALSY [None]
  - HEMIPLEGIA [None]
  - SPEECH DISORDER [None]
